FAERS Safety Report 11131373 (Version 5)
Quarter: 2015Q4

REPORT INFORMATION
  Report Type: Report from Study
  Country: US (occurrence: US)
  Receive Date: 20150522
  Receipt Date: 20151124
  Transmission Date: 20160304
  Serious: Yes (Hospitalization, Other)
  Sender: FDA-Public Use
  Company Number: US-SA-2015SA067220

PATIENT
  Age: 30 Year
  Sex: Female

DRUGS (2)
  1. LEMTRADA [Suspect]
     Active Substance: ALEMTUZUMAB
     Indication: MULTIPLE SCLEROSIS
     Route: 042
     Dates: start: 20150427, end: 20150501
  2. SOLU-MEDROL [Suspect]
     Active Substance: METHYLPREDNISOLONE SODIUM SUCCINATE
     Dosage: EVERY 2  1/2 WEEKS FOR 4 MONTHS
     Route: 065

REACTIONS (35)
  - Candida infection [Recovered/Resolved]
  - Pain [Unknown]
  - Wheezing [Recovered/Resolved]
  - Asthenia [Unknown]
  - Joint swelling [Unknown]
  - Pyrexia [Recovered/Resolved]
  - Pain in extremity [Recovering/Resolving]
  - Malaise [Unknown]
  - Scab [Recovered/Resolved]
  - Muscle twitching [Unknown]
  - Oral mucosal blistering [Recovering/Resolving]
  - Weight increased [Unknown]
  - Chest pain [Recovered/Resolved]
  - Swelling face [Recovered/Resolved]
  - Fatigue [Unknown]
  - Alopecia [Not Recovered/Not Resolved]
  - Feeling hot [Recovered/Resolved]
  - Eye pain [Unknown]
  - Vision blurred [Unknown]
  - Peripheral swelling [Unknown]
  - Tachycardia [Unknown]
  - Cataract [Not Recovered/Not Resolved]
  - Mental impairment [Not Recovered/Not Resolved]
  - Tremor [Not Recovered/Not Resolved]
  - Hypertension [Recovered/Resolved]
  - Gait disturbance [Unknown]
  - Polycystic ovaries [Not Recovered/Not Resolved]
  - Neuralgia [Recovered/Resolved]
  - Back pain [Recovering/Resolving]
  - Hyperhidrosis [Unknown]
  - Chills [Unknown]
  - Oedema peripheral [Unknown]
  - Dyspnoea [Recovered/Resolved]
  - Oropharyngeal pain [Unknown]
  - Visual acuity reduced [Not Recovered/Not Resolved]

NARRATIVE: CASE EVENT DATE: 2015
